FAERS Safety Report 8028985-5 (Version None)
Quarter: 2012Q1

REPORT INFORMATION
  Report Type: 
  Country: None (occurrence: None)
  Receive Date: 20120106
  Receipt Date: 20120103
  Transmission Date: 20120608
  Serious: Yes (Hospitalization)
  Sender: FDA-Public Use
  Company Number: US-VERTEX PHARMACEUTICALS INC.-AE-2012-000118

PATIENT
  Age: 51 Year
  Sex: Male

DRUGS (3)
  1. INTERFERON [Concomitant]
     Indication: HEPATITIS C
     Dates: start: 20111001
  2. INCIVEK [Suspect]
     Indication: HEPATITIS C
     Route: 048
     Dates: start: 20111001
  3. RIBAVIRIN [Concomitant]
     Indication: HEPATITIS C
     Dates: start: 20111001

REACTIONS (1)
  - PANCREATITIS ACUTE [None]
